FAERS Safety Report 9275934 (Version 1)
Quarter: 2013Q2

REPORT INFORMATION
  Report Type: Spontaneous
  Country: FR (occurrence: FR)
  Receive Date: 20130507
  Receipt Date: 20130507
  Transmission Date: 20140414
  Serious: Yes (Hospitalization, Other)
  Sender: FDA-Public Use
  Company Number: FR-MERCK-1304FRA016591

PATIENT
  Age: 52 Year
  Sex: Male
  Weight: 69 kg

DRUGS (5)
  1. VICTRELIS [Suspect]
     Indication: HEPATITIS C
     Dosage: 800 MG, TID
     Route: 048
     Dates: start: 20110610, end: 20110721
  2. VIRAFERONPEG [Suspect]
     Indication: HEPATITIS C
     Dosage: 120 MICROGRAM, QW
     Dates: start: 20110516, end: 20110907
  3. REBETOL [Suspect]
     Indication: HEPATITIS C
     Dosage: 1000 MG, QD
     Route: 048
     Dates: start: 20110516, end: 20110907
  4. DELURSAN [Concomitant]
     Dosage: 6 DF, QD
     Dates: start: 200808
  5. NEORECORMON [Concomitant]
     Indication: ANAEMIA
     Dosage: 60000 IU, QW
     Dates: start: 20110628

REACTIONS (3)
  - Vomiting [Recovered/Resolved]
  - Staphylococcal sepsis [Recovered/Resolved]
  - Pancytopenia [Recovered/Resolved]
